FAERS Safety Report 4362435-5 (Version None)
Quarter: 2004Q2

REPORT INFORMATION
  Report Type: 
  Country: None (occurrence: None)
  Receive Date: 20040521
  Receipt Date: 20040510
  Transmission Date: 20050107
  Serious: Yes (Other)
  Sender: FDA-Public Use
  Company Number: ZA-ROCHE-367192

PATIENT
  Age: 15 Year
  Sex: Male
  Weight: 82 kg

DRUGS (3)
  1. ROACCUTANE [Suspect]
     Route: 048
     Dates: start: 20040120, end: 20040308
  2. ROACCUTANE [Suspect]
     Route: 048
     Dates: start: 20031022, end: 20040119
  3. ROACCUTANE [Suspect]
     Route: 048
     Dates: start: 20040309, end: 20040323

REACTIONS (2)
  - HYPERTENSION [None]
  - URETHRITIS [None]
